FAERS Safety Report 5494953-0 (Version None)
Quarter: 2007Q4

REPORT INFORMATION
  Report Type: 
  Country: None (occurrence: None)
  Receive Date: 20071024
  Receipt Date: 20071016
  Transmission Date: 20080405
  Serious: Yes (Hospitalization)
  Sender: FDA-Public Use
  Company Number: B0436080A

PATIENT
  Age: 56 Year
  Sex: Female
  Weight: 41 kg

DRUGS (20)
  1. ZEFIX [Suspect]
     Indication: HEPATITIS B VIRUS
     Dosage: 100MG PER DAY
     Route: 048
     Dates: start: 20060801
  2. RIVOTRIL [Suspect]
     Indication: NEUROPATHY PERIPHERAL
     Route: 048
     Dates: start: 20060723, end: 20060821
  3. BAKTAR [Suspect]
     Indication: INFECTION
     Route: 048
     Dates: start: 20060801, end: 20060826
  4. BONALON [Suspect]
     Indication: OSTEOPOROSIS
     Dosage: 5MG PER DAY
     Route: 048
     Dates: start: 20060801, end: 20060826
  5. LANSOPRAZOLE [Suspect]
     Indication: GASTRIC ULCER
     Dosage: 15MG PER DAY
     Route: 048
     Dates: start: 20060723, end: 20060826
  6. MEXITIL [Suspect]
     Indication: NEUROSIS
     Dosage: 100MG THREE TIMES PER DAY
     Route: 048
     Dates: start: 20060727, end: 20060902
  7. PREDONINE [Concomitant]
     Indication: NEUROPATHY PERIPHERAL
     Route: 048
     Dates: start: 20060801
  8. ROHYPNOL [Concomitant]
     Route: 048
  9. DEPAS [Concomitant]
     Dosage: .5MG THREE TIMES PER DAY
     Route: 048
     Dates: start: 20060723
  10. LENDORMIN [Concomitant]
     Route: 048
  11. DEPAKENE [Concomitant]
     Indication: NEUROPATHY PERIPHERAL
     Dosage: 200MG TWICE PER DAY
     Route: 048
     Dates: start: 20060822, end: 20060829
  12. DEPAKENE [Concomitant]
     Route: 048
     Dates: start: 20060830, end: 20060926
  13. DEPAKENE [Concomitant]
     Dosage: 400MG TWICE PER DAY
     Route: 048
     Dates: start: 20060927, end: 20061101
  14. ALDACTONE [Concomitant]
     Indication: HYPERTENSION
     Dosage: 25MG PER DAY
     Route: 048
     Dates: start: 20060821, end: 20061024
  15. FAMOTIDINE [Concomitant]
     Indication: GASTRIC ULCER
     Dosage: 20MG TWICE PER DAY
     Route: 048
     Dates: start: 20060827
  16. GLAKAY [Concomitant]
     Indication: OSTEOPOROSIS
     Dosage: 15MG THREE TIMES PER DAY
     Route: 048
     Dates: start: 20060901
  17. FERROMIA [Concomitant]
     Dosage: 50MG PER DAY
     Route: 048
     Dates: start: 20060821
  18. METHYCOBAL [Concomitant]
     Indication: NEUROSIS
     Dosage: 500MCG THREE TIMES PER DAY
     Route: 048
     Dates: start: 20060804, end: 20060929
  19. ONEALFA [Concomitant]
     Indication: OSTEOPOROSIS
     Dosage: .5MCG PER DAY
     Route: 048
     Dates: start: 20060831
  20. NOVORAPID [Concomitant]
     Indication: DIABETES MELLITUS
     Route: 058
     Dates: start: 20060723, end: 20061101

REACTIONS (4)
  - CONDITION AGGRAVATED [None]
  - PANCYTOPENIA [None]
  - PLATELET COUNT DECREASED [None]
  - WHITE BLOOD CELL COUNT DECREASED [None]
